FAERS Safety Report 18305213 (Version 1)
Quarter: 2020Q3

REPORT INFORMATION
  Report Type: Spontaneous
  Country: GB (occurrence: GB)
  Receive Date: 20200924
  Receipt Date: 20200924
  Transmission Date: 20201103
  Serious: Yes (Other)
  Sender: FDA-Public Use
  Company Number: GB-TEVA-2020-GB-1829669

PATIENT
  Age: 65 Year
  Sex: Female
  Weight: 57.15 kg

DRUGS (1)
  1. CLARITHROMYCIN. [Suspect]
     Active Substance: CLARITHROMYCIN
     Indication: PHARYNGITIS
     Dosage: 1000 MILLIGRAM
     Route: 048
     Dates: start: 20200811, end: 20200813

REACTIONS (6)
  - Cardiac flutter [Recovered/Resolved]
  - Rash [Not Recovered/Not Resolved]
  - Dysgeusia [Recovered/Resolved]
  - Palpitations [Recovered/Resolved]
  - Heart rate increased [Recovered/Resolved]
  - Atrial fibrillation [Unknown]

NARRATIVE: CASE EVENT DATE: 20200812
